FAERS Safety Report 9255309 (Version 1)
Quarter: 2013Q2

REPORT INFORMATION
  Report Type: Spontaneous
  Country: US (occurrence: None)
  Receive Date: 20130418
  Receipt Date: 20130418
  Transmission Date: 20140414
  Serious: Yes (Death, Hospitalization)
  Sender: FDA-Public Use
  Company Number: IMP_06670_2013

PATIENT
  Age: 39 Year
  Sex: Male

DRUGS (1)
  1. METFORMIN [Suspect]
     Indication: PRODUCT USED FOR UNKNOWN INDICATION
     Dosage: (90 G [NOT THE PRESCRIBED AMOUNT] ORAL)
     Route: 048

REACTIONS (7)
  - Intentional overdose [None]
  - Completed suicide [None]
  - Treatment failure [None]
  - Continuous haemodiafiltration [None]
  - Lactic acidosis [None]
  - Shock [None]
  - General physical health deterioration [None]
